FAERS Safety Report 16266222 (Version 1)
Quarter: 2019Q2

REPORT INFORMATION
  Report Type: Spontaneous
  Country: CA (occurrence: CA)
  Receive Date: 20190502
  Receipt Date: 20190502
  Transmission Date: 20190711
  Serious: Yes (Hospitalization, Other)
  Sender: FDA-Public Use
  Company Number: CA-BAUSCH-BL-2019-012774

PATIENT
  Age: 54 Year
  Sex: Female

DRUGS (9)
  1. FERROUS SULFATE. [Suspect]
     Active Substance: FERROUS SULFATE
     Indication: ANAEMIA
     Route: 048
  2. WELLBUTRIN XL [Suspect]
     Active Substance: BUPROPION HYDROCHLORIDE
     Indication: DEPRESSION
     Route: 048
  3. GABAPENTIN. [Suspect]
     Active Substance: GABAPENTIN
     Indication: FIBROMYALGIA
     Route: 048
  4. DOMPERIDONE [Suspect]
     Active Substance: DOMPERIDONE
     Indication: IRRITABLE BOWEL SYNDROME
     Route: 048
  5. TEMAZEPAM. [Suspect]
     Active Substance: TEMAZEPAM
     Indication: INSOMNIA
     Route: 048
  6. VITALUX [Suspect]
     Active Substance: MINERALS\VITAMINS
     Indication: MACULAR DEGENERATION
     Route: 048
  7. CLONAZEPAM. [Suspect]
     Active Substance: CLONAZEPAM
     Indication: DEPRESSION
     Route: 048
  8. TYLENOL WITH CODEINE [Suspect]
     Active Substance: ACETAMINOPHEN\CODEINE PHOSPHATE
     Indication: BACK PAIN
     Route: 048
  9. ESCITALOPRAM [Suspect]
     Active Substance: ESCITALOPRAM OXALATE
     Indication: DEPRESSION
     Route: 048

REACTIONS (5)
  - Dehydration [Recovering/Resolving]
  - Product use in unapproved indication [Recovering/Resolving]
  - Dysphagia [Recovering/Resolving]
  - Mental disorder [Recovering/Resolving]
  - Condition aggravated [Recovering/Resolving]
